FAERS Safety Report 4471044-9 (Version None)
Quarter: 2004Q4

REPORT INFORMATION
  Report Type: 
  Country: None (occurrence: None)
  Receive Date: 20041011
  Receipt Date: 20041001
  Transmission Date: 20050328
  Serious: Yes (Hospitalization)
  Sender: FDA-Public Use
  Company Number: ES-GLAXOSMITHKLINE-B0346873A

PATIENT
  Age: 36 Year
  Sex: Female
  Weight: 46 kg

DRUGS (4)
  1. LEXIVA [Suspect]
     Indication: HIV INFECTION
     Dosage: 700MG TWICE PER DAY
     Route: 048
     Dates: start: 20040825, end: 20041001
  2. RITONAVIR [Suspect]
     Indication: HIV INFECTION
     Dosage: 100MG TWICE PER DAY
     Route: 048
     Dates: start: 20040825, end: 20041001
  3. ZIDOVUDINE [Concomitant]
     Indication: HIV INFECTION
     Dates: start: 19990724, end: 20041001
  4. LAMIVUDINE [Concomitant]
     Indication: HIV INFECTION
     Dates: start: 20040825, end: 20041001

REACTIONS (6)
  - EATING DISORDER [None]
  - GASTRODUODENITIS [None]
  - GASTROOESOPHAGEAL REFLUX DISEASE [None]
  - NAUSEA [None]
  - PARAESTHESIA [None]
  - VOMITING [None]
